FAERS Safety Report 7174647-6 (Version None)
Quarter: 2010Q4

REPORT INFORMATION
  Report Type: 
  Country: None (occurrence: None)
  Receive Date: 20101219
  Receipt Date: 20100406
  Transmission Date: 20110411
  Serious: No
  Sender: FDA-Public Use
  Company Number: US-AMGEN-KDL404030

PATIENT

DRUGS (11)
  1. ENBREL [Suspect]
     Indication: PSORIATIC ARTHROPATHY
  2. ENBREL [Suspect]
     Indication: PSORIASIS
  3. ENBREL [Suspect]
     Indication: RHEUMATOID ARTHRITIS
  4. ADALIMUMAB [Suspect]
     Dosage: 40 MG, BID
  5. MONTELUKAST [Suspect]
  6. METHOTREXATE [Concomitant]
  7. ESOMEPRAZOLE MAGNESIUM [Concomitant]
  8. LEVOTHYROXINE SODIUM [Concomitant]
  9. FLUTICASONE PROPIONATE [Concomitant]
  10. FOLIC ACID [Concomitant]
  11. CYCLOSPORINE [Concomitant]

REACTIONS (13)
  - ARTHRALGIA [None]
  - CHEST DISCOMFORT [None]
  - DRUG HYPERSENSITIVITY [None]
  - DYSPNOEA [None]
  - INJECTION SITE ERYTHEMA [None]
  - INJECTION SITE PAPULE [None]
  - INJECTION SITE REACTION [None]
  - LIP DRY [None]
  - NAUSEA [None]
  - PALPITATIONS [None]
  - RASH [None]
  - RESPIRATORY DISORDER [None]
  - TONGUE DRY [None]
